FAERS Safety Report 13711535 (Version 1)
Quarter: 2017Q3

REPORT INFORMATION
  Report Type: Spontaneous
  Country: US (occurrence: US)
  Receive Date: 20170703
  Receipt Date: 20170703
  Transmission Date: 20171127
  Serious: Yes (Hospitalization)
  Sender: FDA-Public Use
  Company Number: US-SEBELA IRELAND LIMITED-2017SEB00057

PATIENT
  Sex: Female
  Weight: 58.96 kg

DRUGS (6)
  1. LOTRONEX [Suspect]
     Active Substance: ALOSETRON HYDROCHLORIDE
     Indication: IRRITABLE BOWEL SYNDROME
     Dosage: VARIABLE DOSING
  2. AMBIEN [Concomitant]
     Active Substance: ZOLPIDEM TARTRATE
  3. KLONOPIN [Concomitant]
     Active Substance: CLONAZEPAM
  4. ATORVASTATIN [Concomitant]
     Active Substance: ATORVASTATIN
  5. IMODIUM [Suspect]
     Active Substance: LOPERAMIDE HYDROCHLORIDE
  6. LOTRONEX [Suspect]
     Active Substance: ALOSETRON HYDROCHLORIDE
     Indication: IRRITABLE BOWEL SYNDROME
     Dosage: VARIABLE DOSING
     Route: 048

REACTIONS (12)
  - Diverticulitis [Recovered/Resolved]
  - Product substitution issue [Not Recovered/Not Resolved]
  - Constipation [Not Recovered/Not Resolved]
  - Diarrhoea [Not Recovered/Not Resolved]
  - Abdominal pain upper [Not Recovered/Not Resolved]
  - Headache [Recovered/Resolved]
  - Drug effect incomplete [Not Recovered/Not Resolved]
  - Defaecation urgency [Not Recovered/Not Resolved]
  - Eye pain [Recovered/Resolved]
  - Drug interaction [Not Recovered/Not Resolved]
  - Abdominal pain [Not Recovered/Not Resolved]
  - Dry eye [Recovered/Resolved]

NARRATIVE: CASE EVENT DATE: 2014
